FAERS Safety Report 17070069 (Version 1)
Quarter: 2019Q4

REPORT INFORMATION
  Report Type: Spontaneous
  Country: FR (occurrence: FR)
  Receive Date: 20191125
  Receipt Date: 20191125
  Transmission Date: 20200122
  Serious: Yes (Hospitalization)
  Sender: FDA-Public Use
  Company Number: FR-TEVA-2019-FR-1141738

PATIENT
  Age: 73 Year
  Sex: Female
  Weight: 53 kg

DRUGS (5)
  1. CLOPIDOGREL MYLAN 75 MG, COMPRIME PELLICULE [Suspect]
     Active Substance: CLOPIDOGREL HYDROCHLORIDE
     Indication: MYOCARDIAL ISCHAEMIA
     Dosage: 1 DOSAGE FORMS PER DAY
     Route: 048
     Dates: start: 20190827, end: 20190926
  2. PAROXETINE ARROW 20 MG, COMPRIME PELLICULE SECABLE [Suspect]
     Active Substance: PAROXETINE HYDROCHLORIDE
     Indication: DEPRESSION
     Dosage: 2 DOSAGE FORMS PER DAY
     Route: 048
     Dates: start: 20190828, end: 20190930
  3. PREGABALINE MYLAN 25 MG, GELULE [Suspect]
     Active Substance: PREGABALIN
     Indication: PAIN
     Dosage: 2 DOSAGE FORMS PER DAY
     Route: 048
     Dates: start: 20190916, end: 20190930
  4. ARAVA [Suspect]
     Active Substance: LEFLUNOMIDE
     Indication: RHEUMATOID ARTHRITIS
     Dosage: 0.5 DOSAGE FORMS PER DAY
     Route: 048
     Dates: start: 20190828, end: 20190930
  5. LANSOPRAZOLE MYLAN [Suspect]
     Active Substance: LANSOPRAZOLE
     Indication: PROPHYLAXIS
     Dosage: 1 DOSAGE FORMS PER DAY
     Route: 048
     Dates: start: 20190823, end: 20190929

REACTIONS (2)
  - Thrombotic microangiopathy [Recovering/Resolving]
  - Hepatocellular injury [Recovered/Resolved]

NARRATIVE: CASE EVENT DATE: 20190926
